FAERS Safety Report 25881518 (Version 1)
Quarter: 2025Q4

REPORT INFORMATION
  Report Type: Spontaneous
  Country: JP (occurrence: JP)
  Receive Date: 20251005
  Receipt Date: 20251005
  Transmission Date: 20260117
  Serious: Yes (Other)
  Sender: SANOFI AVENTIS
  Company Number: JP-ASTELLAS-2025-AER-049774

PATIENT
  Age: 84 Year
  Sex: Male

DRUGS (4)
  1. TAMSULOSIN HYDROCHLORIDE [Suspect]
     Active Substance: TAMSULOSIN HYDROCHLORIDE
     Indication: Benign prostatic hyperplasia
     Dosage: UNK
     Route: 048
  2. MIRABEGRON [Suspect]
     Active Substance: MIRABEGRON
     Indication: Hypertonic bladder
     Dosage: 25 MG, QD
     Route: 048
  3. MIRABEGRON [Suspect]
     Active Substance: MIRABEGRON
     Dosage: 25 MG, BID
     Route: 048
  4. MIRABEGRON [Suspect]
     Active Substance: MIRABEGRON
     Dosage: 50 MG, QD
     Route: 048

REACTIONS (4)
  - Urinary retention [Recovered/Resolved]
  - Incontinence [Recovered/Resolved]
  - Product prescribing issue [Unknown]
  - Inappropriate schedule of product administration [Unknown]
